FAERS Safety Report 9336703 (Version 2)
Quarter: 2013Q2

REPORT INFORMATION
  Report Type: Spontaneous
  Country: ES (occurrence: ES)
  Receive Date: 20130607
  Receipt Date: 20130613
  Transmission Date: 20140414
  Serious: Yes (Disabling)
  Sender: FDA-Public Use
  Company Number: PHHY2013ES056995

PATIENT
  Age: 65 Year
  Sex: Male

DRUGS (2)
  1. EXJADE [Suspect]
     Indication: IRON OVERLOAD
     Dosage: 500 MG, BID
     Route: 048
     Dates: start: 20130521
  2. EXJADE [Suspect]
     Indication: OFF LABEL USE

REACTIONS (3)
  - Disorientation [Recovering/Resolving]
  - Balance disorder [Not Recovered/Not Resolved]
  - Local swelling [Not Recovered/Not Resolved]
